FAERS Safety Report 4324656-7 (Version None)
Quarter: 2004Q1

REPORT INFORMATION
  Report Type: 
  Country: None (occurrence: None)
  Receive Date: 20040322
  Receipt Date: 20040310
  Transmission Date: 20041129
  Serious: Yes (Other)
  Sender: FDA-Public Use
  Company Number: JP-JNJFOC-20040302157

PATIENT
  Age: 91 Year
  Sex: Male

DRUGS (1)
  1. LEVOFLOXACIN [Suspect]
     Indication: URINARY TRACT INFECTION
     Dosage: ORAL
     Route: 048
     Dates: start: 20030819, end: 20030827

REACTIONS (2)
  - ANTINEUTROPHIL CYTOPLASMIC ANTIBODY [None]
  - COLITIS ULCERATIVE [None]
